FAERS Safety Report 5191307-1 (Version None)
Quarter: 2006Q4

REPORT INFORMATION
  Report Type: 
  Country: None (occurrence: None)
  Receive Date: 20061219
  Receipt Date: 20061219
  Transmission Date: 20070319
  Serious: No
  Sender: FDA-Public Use
  Company Number: None

PATIENT
  Age: 76 Year
  Sex: Female
  Weight: 71.6683 kg

DRUGS (8)
  1. ALIMTA [Suspect]
     Indication: LUNG NEOPLASM MALIGNANT
     Dosage: 500 MG/M2   Q 14 DAYS  INTRAVENOUS (NOT OTHERWISE SPECIFIED)
     Route: 042
     Dates: start: 20061019, end: 20061102
  2. GEMCITABINE [Suspect]
     Indication: LUNG NEOPLASM MALIGNANT
     Dosage: 1500 MG/M2   Q 14 DAYS   INTRAVENOUS (NOT OTHERWISE SPECIFIED)
     Route: 042
     Dates: start: 20061019, end: 20061102
  3. DEXAMETHASONE [Concomitant]
  4. GRANISETRON [Concomitant]
  5. ALEVE [Concomitant]
  6. LIPITOR [Concomitant]
  7. PRILOSEC [Concomitant]
  8. XANAX [Concomitant]

REACTIONS (6)
  - ASTHENIA [None]
  - BACK PAIN [None]
  - BLOOD PRESSURE INCREASED [None]
  - FATIGUE [None]
  - NEUTROPENIA [None]
  - RESPIRATORY RATE INCREASED [None]
